FAERS Safety Report 5365892-0 (Version None)
Quarter: 2007Q2

REPORT INFORMATION
  Report Type: 
  Country: None (occurrence: None)
  Receive Date: 20070621
  Receipt Date: 20070614
  Transmission Date: 20071010
  Serious: Yes (Other)
  Sender: FDA-Public Use
  Company Number: GB-MERCK-0706GBR00064

PATIENT
  Age: 89 Year
  Sex: Male

DRUGS (3)
  1. TRUSOPT [Suspect]
     Indication: OPEN ANGLE GLAUCOMA
     Route: 047
  2. BRIMONIDINE TARTRATE [Suspect]
     Indication: OPEN ANGLE GLAUCOMA
     Route: 065
  3. LATANOPROST [Suspect]
     Indication: OPEN ANGLE GLAUCOMA
     Route: 065

REACTIONS (2)
  - ECTROPION [None]
  - SURGICAL FAILURE [None]
